FAERS Safety Report 13564959 (Version 1)
Quarter: 2017Q2

REPORT INFORMATION
  Report Type: Spontaneous
  Country: CN (occurrence: CN)
  Receive Date: 20170519
  Receipt Date: 20170519
  Transmission Date: 20170830
  Serious: Yes (Other)
  Sender: FDA-Public Use
  Company Number: CN-NAPPMUNDI-GBR-2017-0045274

PATIENT
  Age: 70 Year
  Sex: Male
  Weight: 45 kg

DRUGS (1)
  1. MS CONTIN [Suspect]
     Active Substance: MORPHINE SULFATE
     Indication: CANCER PAIN
     Dosage: 30 MG, TID
     Route: 048
     Dates: start: 20170321, end: 20170322

REACTIONS (4)
  - Depressed level of consciousness [Recovering/Resolving]
  - Patient uncooperative [Recovering/Resolving]
  - Restlessness [Recovering/Resolving]
  - Agitation [Recovering/Resolving]

NARRATIVE: CASE EVENT DATE: 20170322
